FAERS Safety Report 15331608 (Version 1)
Quarter: 2018Q3

REPORT INFORMATION
  Report Type: Spontaneous
  Country: US (occurrence: US)
  Receive Date: 20180829
  Receipt Date: 20180829
  Transmission Date: 20181010
  Serious: No
  Sender: FDA-Public Use
  Company Number: US-TEVA-2018-US-949788

PATIENT
  Sex: Female

DRUGS (1)
  1. OXYTROL [Suspect]
     Active Substance: OXYBUTYNIN
     Route: 065

REACTIONS (4)
  - Drug ineffective [Unknown]
  - Pollakiuria [Unknown]
  - Expired product administered [Unknown]
  - Product adhesion issue [Unknown]
